FAERS Safety Report 7217805-4 (Version None)
Quarter: 2011Q1

REPORT INFORMATION
  Report Type: 
  Country: None (occurrence: None)
  Receive Date: 20110110
  Receipt Date: 20110105
  Transmission Date: 20110831
  Serious: Yes (Death)
  Sender: FDA-Public Use
  Company Number: PHHY2011GB01337

PATIENT
  Age: 25 Year
  Sex: Male

DRUGS (16)
  1. FLUCONAZOLE [Suspect]
     Indication: ORAL CANDIDIASIS
     Dosage: UNK
  2. DARUNAVIR [Suspect]
     Indication: HIV INFECTION
     Dosage: UNK
  3. HEPARIN [Concomitant]
     Dosage: UNK
  4. PYRAZINAMIDE [Concomitant]
     Indication: ANTIBIOTIC PROPHYLAXIS
     Dosage: UNK
  5. AMIKACIN [Concomitant]
     Indication: ANTIBIOTIC PROPHYLAXIS
     Dosage: UNK
     Route: 042
  6. VALGANCICLOVIR HCL [Concomitant]
     Dosage: UNK
  7. ETHAMBUTOL HYDROCHLORIDE [Concomitant]
     Indication: ANTIBIOTIC PROPHYLAXIS
     Dosage: UNK
  8. CLOFAZIMINE [Concomitant]
     Dosage: UNK
  9. PROTHIONAMIDE [Concomitant]
     Indication: TUBERCULOSIS
     Dosage: UNK
  10. MOXIFLOXACIN [Suspect]
     Indication: TUBERCULOSIS
     Dosage: UNK
  11. RITONAVIR [Suspect]
     Indication: HIV INFECTION
     Dosage: UNK
  12. LINEZOLID [Concomitant]
     Indication: TUBERCULOSIS
     Dosage: UNK
  13. TRUVADA [Concomitant]
     Dosage: UNK
  14. ONDANSETRON [Suspect]
     Dosage: UNK
  15. EFAVIRENZ [Concomitant]
     Dosage: UNK
  16. CYCLOSERINE [Concomitant]
     Indication: TUBERCULOSIS
     Dosage: UNK

REACTIONS (2)
  - AIDS RELATED COMPLICATION [None]
  - ARRHYTHMIA [None]
